FAERS Safety Report 24647354 (Version 2)
Quarter: 2024Q4

REPORT INFORMATION
  Report Type: Spontaneous
  Country: CA (occurrence: CA)
  Receive Date: 20241121
  Receipt Date: 20241230
  Transmission Date: 20250114
  Serious: No
  Sender: PFIZER
  Company Number: CA-PFIZER INC-202400305374

PATIENT
  Age: 63 Year
  Sex: Female

DRUGS (7)
  1. ABRILADA [Suspect]
     Active Substance: ADALIMUMAB-AFZB
     Indication: Psoriasis
     Dosage: UNK MG
  2. VITAMIN D NOS [Concomitant]
     Active Substance: CHOLECALCIFEROL\ERGOCALCIFEROL
     Dosage: 1 DF
  3. CALCIUM [Concomitant]
     Active Substance: CALCIUM
     Dosage: 1 DF
  4. RIVA PERINDOPRIL [Concomitant]
     Dosage: 1 DF
  5. ISOPTIN [Concomitant]
     Active Substance: VERAPAMIL HYDROCHLORIDE
     Dosage: 1 DF
  6. PROLIA [Concomitant]
     Active Substance: DENOSUMAB
     Dosage: 1 DF
  7. METHOTREXATE [Concomitant]
     Active Substance: METHOTREXATE
     Indication: Psoriasis
     Dosage: 1 DF
     Dates: start: 2012, end: 2013

REACTIONS (1)
  - Injection site pain [Unknown]
